FAERS Safety Report 10801132 (Version 3)
Quarter: 2016Q1

REPORT INFORMATION
  Report Type: Spontaneous
  Country: US (occurrence: US)
  Receive Date: 20150216
  Receipt Date: 20160217
  Transmission Date: 20160525
  Serious: No
  Sender: FDA-Public Use
  Company Number: US-ALLERGAN-1422801US

PATIENT
  Age: 57 Year
  Sex: Female

DRUGS (3)
  1. RESTASIS [Suspect]
     Active Substance: CYCLOSPORINE
     Indication: DRY EYE
     Dosage: 1 DROP PER EYE
     Route: 047
     Dates: start: 20140317
  2. REFRESH PLUS [Concomitant]
     Active Substance: CARBOXYMETHYLCELLULOSE SODIUM
     Indication: DRY EYE
  3. RESTASIS [Suspect]
     Active Substance: CYCLOSPORINE
     Dosage: 2 GTT, BID
     Route: 047
     Dates: start: 20140317

REACTIONS (7)
  - Tinnitus [Recovering/Resolving]
  - Upper respiratory tract infection [Unknown]
  - Conjunctivitis [Recovering/Resolving]
  - Eye discharge [Unknown]
  - Hypoacusis [Recovering/Resolving]
  - Middle ear effusion [Recovering/Resolving]
  - Vision blurred [Unknown]

NARRATIVE: CASE EVENT DATE: 201410
